FAERS Safety Report 17195002 (Version 2)
Quarter: 2019Q4

REPORT INFORMATION
  Report Type: Spontaneous
  Country: US (occurrence: US)
  Receive Date: 20191224
  Receipt Date: 20191227
  Transmission Date: 20200122
  Serious: No
  Sender: FDA-Public Use
  Company Number: US-JNJFOC-20191229841

PATIENT
  Sex: Male
  Weight: 90.8 kg

DRUGS (1)
  1. TYLENOL REGULAR STRENGTH [Suspect]
     Active Substance: ACETAMINOPHEN
     Indication: LIGAMENT INJURY
     Route: 048

REACTIONS (1)
  - Hyperhidrosis [Recovered/Resolved]
